FAERS Safety Report 9798711 (Version 3)
Quarter: 2015Q3

REPORT INFORMATION
  Report Type: Spontaneous
  Country: US (occurrence: US)
  Receive Date: 20140106
  Receipt Date: 20150806
  Transmission Date: 20151125
  Serious: No
  Sender: FDA-Public Use
  Company Number: US-GILEAD-2010-0029586

PATIENT
  Age: 84 Year
  Sex: Female
  Weight: 58.97 kg

DRUGS (10)
  1. LETAIRIS [Suspect]
     Active Substance: AMBRISENTAN
     Indication: PULMONARY ARTERIAL HYPERTENSION
     Route: 048
     Dates: start: 20100510
  2. FUROSEMIDE. [Concomitant]
     Active Substance: FUROSEMIDE
  3. CITALOPRAM [Concomitant]
     Active Substance: CITALOPRAM HYDROBROMIDE
  4. POTASSIUM CHLORIDE. [Concomitant]
     Active Substance: POTASSIUM CHLORIDE
  5. METOPROLOL [Concomitant]
     Active Substance: METOPROLOL
  6. MULTIVITAMIN [Concomitant]
     Active Substance: VITAMINS
  7. REVATIO [Concomitant]
     Active Substance: SILDENAFIL CITRATE
  8. LISINOPRIL. [Concomitant]
     Active Substance: LISINOPRIL
  9. ARIMIDEX [Concomitant]
     Active Substance: ANASTROZOLE
  10. ASPIRIN. [Concomitant]
     Active Substance: ASPIRIN

REACTIONS (1)
  - Anaemia [Unknown]
